FAERS Safety Report 20888547 (Version 1)
Quarter: 2022Q2

REPORT INFORMATION
  Report Type: Spontaneous
  Country: CN (occurrence: CN)
  Receive Date: 20220529
  Receipt Date: 20220529
  Transmission Date: 20220721
  Serious: Yes (Other)
  Sender: FDA-Public Use
  Company Number: CN-NOVARTISPH-NVSC2022CN119879

PATIENT
  Age: 71 Year
  Sex: Female
  Weight: 67 kg

DRUGS (1)
  1. ACLASTA [Suspect]
     Active Substance: ZOLEDRONIC ACID
     Indication: Osteoporosis
     Dosage: 5 MG (STRENGTH:100ML/5MG)
     Route: 042
     Dates: start: 20220520, end: 20220520

REACTIONS (11)
  - Shock [Recovered/Resolved]
  - Arrhythmia [Unknown]
  - Syncope [Unknown]
  - Atrial fibrillation [Unknown]
  - Tachycardia [Unknown]
  - Heart rate increased [Recovering/Resolving]
  - Blood pressure decreased [Recovering/Resolving]
  - Oxygen saturation decreased [Unknown]
  - Hyperhidrosis [Unknown]
  - Chest discomfort [Unknown]
  - Blood glucose increased [Unknown]

NARRATIVE: CASE EVENT DATE: 20220520
